FAERS Safety Report 19743142 (Version 1)
Quarter: 2021Q3

REPORT INFORMATION
  Report Type: Spontaneous
  Country: US (occurrence: US)
  Receive Date: 20210824
  Receipt Date: 20210824
  Transmission Date: 20211014
  Serious: No
  Sender: FDA-Public Use
  Company Number: US-ABBVIE-21K-163-3831977-00

PATIENT
  Age: 50 Year
  Sex: Female

DRUGS (1)
  1. MAVYRET [Suspect]
     Active Substance: GLECAPREVIR\PIBRENTASVIR
     Indication: HEPATITIS C
     Route: 048
     Dates: start: 20210210

REACTIONS (6)
  - Hypertension [Unknown]
  - Feeling abnormal [Unknown]
  - Depression [Unknown]
  - Contusion [Recovered/Resolved]
  - Chronic obstructive pulmonary disease [Unknown]
  - Anxiety [Unknown]

NARRATIVE: CASE EVENT DATE: 2021
